FAERS Safety Report 4811726-X (Version None)
Quarter: 2005Q4

REPORT INFORMATION
  Report Type: 
  Country: None (occurrence: None)
  Receive Date: 20051025
  Receipt Date: 20051020
  Transmission Date: 20060501
  Serious: Yes (Death)
  Sender: FDA-Public Use
  Company Number: 211210

PATIENT
  Age: 77 Year
  Sex: Male

DRUGS (6)
  1. RITUXAN [Suspect]
     Indication: NON-HODGKIN'S LYMPHOMA
     Dosage: INTRAVENOUS
     Route: 042
     Dates: start: 20020101
  2. RITUXAN [Suspect]
     Indication: NON-HODGKIN'S LYMPHOMA
     Dosage: INTRAVENOUS
     Route: 042
     Dates: start: 20030101
  3. PIRARUBICIN (PIRARUBICIN) [Concomitant]
  4. CYCLOPHOSPHAMIDE [Concomitant]
  5. VINCRISTINE [Concomitant]
  6. PREDNISONE [Concomitant]

REACTIONS (8)
  - CHEST X-RAY ABNORMAL [None]
  - DRUG EFFECT DECREASED [None]
  - LYMPHOMA [None]
  - NEOPLASM RECURRENCE [None]
  - OXYGEN SATURATION DECREASED [None]
  - PNEUMOCYSTIS JIROVECI PNEUMONIA [None]
  - PYREXIA [None]
  - RESPIRATORY FAILURE [None]
